FAERS Safety Report 17491933 (Version 1)
Quarter: 2020Q1

REPORT INFORMATION
  Report Type: Spontaneous
  Country: US (occurrence: US)
  Receive Date: 20200304
  Receipt Date: 20200304
  Transmission Date: 20200409
  Serious: No
  Sender: FDA-Public Use
  Company Number: US-AMGEN-USASP2020033178

PATIENT
  Age: 66 Year
  Sex: Female

DRUGS (1)
  1. PROLIA [Suspect]
     Active Substance: DENOSUMAB
     Indication: OSTEOPOROSIS POSTMENOPAUSAL
     Dosage: UNK
     Route: 065
     Dates: start: 201609

REACTIONS (5)
  - Joint injury [Unknown]
  - Muscle strain [Unknown]
  - Bursitis [Unknown]
  - Bone density decreased [Unknown]
  - Tendonitis [Unknown]

NARRATIVE: CASE EVENT DATE: 20191226
